FAERS Safety Report 21195123 (Version 1)
Quarter: 2022Q3

REPORT INFORMATION
  Report Type: Spontaneous
  Country: US (occurrence: None)
  Receive Date: 20220809
  Receipt Date: 20220809
  Transmission Date: 20221027
  Serious: No
  Sender: FDA-Public Use
  Company Number: None

PATIENT
  Age: 75 Year
  Sex: Female

DRUGS (1)
  1. CAPECITABINE [Suspect]
     Active Substance: CAPECITABINE
     Indication: Product used for unknown indication
     Dosage: 1500MG BID ORAL
     Route: 048
     Dates: start: 202206, end: 20220729

REACTIONS (8)
  - Diarrhoea [None]
  - Feeding disorder [None]
  - Oligodipsia [None]
  - Rash [None]
  - Pain in extremity [None]
  - Gait inability [None]
  - Skin erosion [None]
  - Pain of skin [None]

NARRATIVE: CASE EVENT DATE: 20220805
